FAERS Safety Report 7421231-2 (Version None)
Quarter: 2011Q2

REPORT INFORMATION
  Report Type: 
  Country: None (occurrence: None)
  Receive Date: 20110418
  Receipt Date: 20110407
  Transmission Date: 20111010
  Serious: Yes (Hospitalization)
  Sender: FDA-Public Use
  Company Number: US-NOVOPROD-326317

PATIENT
  Age: 61 Year
  Sex: Female
  Weight: 70.295 kg

DRUGS (5)
  1. NOVOLOG [Suspect]
     Indication: TYPE 2 DIABETES MELLITUS
     Dosage: 5 UNITS IN AM, 6 LUNCH AND DINNER
     Route: 058
     Dates: end: 20110301
  2. LANTUS [Concomitant]
     Dosage: 25 IU, QD
     Route: 058
  3. NOVOLOG [Suspect]
     Dosage: 10 U, TID
     Route: 058
     Dates: start: 20110408
  4. NOVOLOG [Suspect]
     Dosage: 10 U, TID
     Route: 058
     Dates: start: 20110301, end: 20110406
  5. LANTUS [Concomitant]
     Indication: TYPE 2 DIABETES MELLITUS
     Dosage: 33 IU, QD
     Route: 058
     Dates: start: 20110101

REACTIONS (8)
  - PRURITUS GENERALISED [None]
  - HEPATIC ENZYME INCREASED [None]
  - DEHYDRATION [None]
  - HYPERTENSION [None]
  - BLOOD GLUCOSE INCREASED [None]
  - WEIGHT DECREASED [None]
  - URINARY TRACT INFECTION [None]
  - BLOOD CHOLESTEROL INCREASED [None]
